FAERS Safety Report 9153534 (Version 2)
Quarter: 2013Q1

REPORT INFORMATION
  Report Type: Spontaneous
  Country: PH (occurrence: PH)
  Receive Date: 20130311
  Receipt Date: 20130318
  Transmission Date: 20140127
  Serious: Yes (Death, Other)
  Sender: FDA-Public Use
  Company Number: PH-009507513-1303PHL002839

PATIENT
  Age: 51 Year
  Sex: Female

DRUGS (2)
  1. JANUVIA [Suspect]
     Dosage: 0.5 TAB, QD
     Route: 048
     Dates: start: 2012
  2. INSULIN [Concomitant]

REACTIONS (4)
  - Cardiac arrest [Fatal]
  - Renal failure [Fatal]
  - Wrong technique in drug usage process [Unknown]
  - Dialysis [Unknown]
